FAERS Safety Report 24872943 (Version 1)
Quarter: 2025Q1

REPORT INFORMATION
  Report Type: Spontaneous
  Country: CN (occurrence: CN)
  Receive Date: 20250122
  Receipt Date: 20250122
  Transmission Date: 20250408
  Serious: Yes (Other)
  Sender: ROCHE
  Company Number: CN-ROCHE-10000180308

PATIENT
  Age: 23 Year
  Sex: Female

DRUGS (13)
  1. BEVACIZUMAB [Suspect]
     Active Substance: BEVACIZUMAB
     Indication: Colorectal cancer metastatic
     Route: 065
     Dates: start: 20210502, end: 20210805
  2. BEVACIZUMAB [Suspect]
     Active Substance: BEVACIZUMAB
     Indication: Metastases to liver
  3. OXALIPLATIN [Concomitant]
     Active Substance: OXALIPLATIN
     Indication: Colorectal cancer metastatic
     Route: 065
     Dates: start: 20210502, end: 20210805
  4. OXALIPLATIN [Concomitant]
     Active Substance: OXALIPLATIN
     Indication: Metastases to liver
  5. FLUOROURACIL [Concomitant]
     Active Substance: FLUOROURACIL
     Indication: Metastases to liver
     Dosage: 2.4 G/M2 Q2W
     Route: 065
     Dates: start: 20210502, end: 20210805
  6. FLUOROURACIL [Concomitant]
     Active Substance: FLUOROURACIL
     Indication: Colorectal cancer metastatic
     Dosage: 2.4 G/M2 Q2W
     Route: 065
  7. LEUCOVORIN [Concomitant]
     Active Substance: LEUCOVORIN\LEUCOVORIN CALCIUM
     Indication: Colorectal cancer metastatic
     Route: 065
     Dates: start: 20210502, end: 20210805
  8. LEUCOVORIN [Concomitant]
     Active Substance: LEUCOVORIN\LEUCOVORIN CALCIUM
     Indication: Metastases to liver
     Route: 065
  9. IRINOTECAN [Concomitant]
     Active Substance: IRINOTECAN
     Indication: Metastases to liver
     Route: 065
     Dates: start: 20210502, end: 20210805
  10. IRINOTECAN [Concomitant]
     Active Substance: IRINOTECAN
     Indication: Colorectal cancer metastatic
     Route: 065
  11. TS-1 [Concomitant]
     Active Substance: GIMERACIL\OTERACIL POTASSIUM\TEGAFUR
     Dosage: ON  D1-14; NINE CYCLES
     Route: 048
     Dates: start: 202108, end: 202204
  12. FRUQUINTINIB [Concomitant]
     Active Substance: FRUQUINTINIB
     Dosage: ON D1-21 ; NINE CYCLES
     Dates: start: 202108, end: 202204
  13. SINTILIMAB [Concomitant]
     Active Substance: SINTILIMAB
     Dosage: IVD; NINE CYCLES
     Dates: start: 202108, end: 202204

REACTIONS (2)
  - Gastrointestinal fistula [Recovered/Resolved]
  - Abdominal infection [Recovered/Resolved]
